FAERS Safety Report 9220761 (Version 1)
Quarter: 2013Q2

REPORT INFORMATION
  Report Type: Spontaneous
  Country: US (occurrence: US)
  Receive Date: 20130409
  Receipt Date: 20130409
  Transmission Date: 20140414
  Serious: Yes (Hospitalization)
  Sender: FDA-Public Use
  Company Number: US-BAYER-2013-042745

PATIENT
  Age: 40 Year
  Sex: Female

DRUGS (19)
  1. YASMIN [Suspect]
  2. YAZ [Suspect]
  3. OCELLA [Suspect]
  4. RHINOCORT [Concomitant]
  5. TYLENOL [Concomitant]
  6. MOTRIN [Concomitant]
  7. ULTRAM [Concomitant]
  8. ASPIRIN [Concomitant]
  9. AMBIEN [Concomitant]
  10. ZOLOFT [Concomitant]
  11. DICLOFENAC W/MISOPROSTOL [Concomitant]
  12. AUGMENTIN [Concomitant]
  13. LYRICA [Concomitant]
  14. SKELAXIN [Concomitant]
     Dosage: UNK
     Dates: start: 20071024
  15. HYDROCODONE/ACETAMINOPHEN [Concomitant]
     Dosage: UNK
     Dates: start: 20071021
  16. HYDROCODONE/ACETAMINOPHEN [Concomitant]
     Dosage: UNK
     Dates: start: 20071024
  17. PERCOCET [Concomitant]
  18. LORTAB [Concomitant]
  19. ALLEGRA [Concomitant]

REACTIONS (1)
  - Deep vein thrombosis [Recovered/Resolved]
